FAERS Safety Report 8549362-4 (Version None)
Quarter: 2012Q3

REPORT INFORMATION
  Report Type: 
  Country: None (occurrence: None)
  Receive Date: 20120730
  Receipt Date: 20120725
  Transmission Date: 20120928
  Serious: Yes (Hospitalization, Other)
  Sender: FDA-Public Use
  Company Number: US-ROCHE-1051097

PATIENT
  Sex: Female
  Weight: 99.1 kg

DRUGS (11)
  1. CLONIDINE [Concomitant]
     Indication: HYPERTENSION
     Route: 048
     Dates: start: 20120523
  2. EXFORGE [Concomitant]
     Dates: start: 20120220
  3. COLACE [Concomitant]
     Dates: start: 20120110
  4. METOPROLOL TARTRATE [Concomitant]
     Dates: start: 20110512
  5. POTASSIUM CHLORIDE [Concomitant]
     Dates: start: 20120423
  6. VALTREX [Concomitant]
     Dates: start: 20120702
  7. HYDROCHLOROTHIAZIDE [Concomitant]
     Dates: start: 20120220
  8. METFORMIN HYDROCHLORIDE [Concomitant]
     Dates: start: 20111227
  9. PRILOSEC [Concomitant]
     Dates: start: 20110512
  10. ZELBORAF [Suspect]
     Indication: MALIGNANT MELANOMA
     Route: 048
  11. GLIPIZIDE [Concomitant]
     Dates: start: 20120319

REACTIONS (6)
  - DIARRHOEA [None]
  - ARTHRALGIA [None]
  - RASH [None]
  - PANCREATITIS [None]
  - RENAL FAILURE [None]
  - PYREXIA [None]
